FAERS Safety Report 12185130 (Version 1)
Quarter: 2016Q1

REPORT INFORMATION
  Report Type: Spontaneous
  Country: US (occurrence: US)
  Receive Date: 20160316
  Receipt Date: 20160316
  Transmission Date: 20160526
  Serious: Yes (Hospitalization, Other)
  Sender: FDA-Public Use
  Company Number: US-ELI_LILLY_AND_COMPANY-US201603002145

PATIENT
  Age: 58 Year
  Sex: Female

DRUGS (14)
  1. DULOXETINE HYDROCHLORIDE. [Suspect]
     Active Substance: DULOXETINE HYDROCHLORIDE
     Indication: DEPRESSION
     Dosage: 120 MG, UNK
  2. BUPROPION. [Concomitant]
     Active Substance: BUPROPION
  3. CALCIUM [Concomitant]
     Active Substance: CALCIUM
  4. VITAMIN D                          /00107901/ [Concomitant]
     Active Substance: ERGOCALCIFEROL
     Dosage: 4000 UNK, UNK
  5. TRAZODON [Concomitant]
     Active Substance: TRAZODONE HYDROCHLORIDE
  6. FEXOFENADINE [Concomitant]
     Active Substance: FEXOFENADINE\FEXOFENADINE HYDROCHLORIDE
  7. FOLATE [Concomitant]
     Active Substance: FOLATE SODIUM
  8. VITAMIN D                          /00107901/ [Concomitant]
     Active Substance: ERGOCALCIFEROL
     Dosage: 5000 UNK, UNK
  9. DULOXETINE HYDROCHLORIDE. [Suspect]
     Active Substance: DULOXETINE HYDROCHLORIDE
     Indication: NEUROPATHY PERIPHERAL
  10. CYMBALTA [Interacting]
     Active Substance: DULOXETINE HYDROCHLORIDE
     Indication: DEPRESSION
     Dosage: 120 MG, QD
     Route: 065
  11. CYMBALTA [Interacting]
     Active Substance: DULOXETINE HYDROCHLORIDE
     Indication: NEUROPATHY PERIPHERAL
  12. DURAGESIC [Interacting]
     Active Substance: FENTANYL
     Indication: PAIN
     Route: 062
  13. CARAFATE [Concomitant]
     Active Substance: SUCRALFATE
  14. XANAX [Concomitant]
     Active Substance: ALPRAZOLAM

REACTIONS (15)
  - Confusional state [Unknown]
  - Vitamin D deficiency [Unknown]
  - Folate deficiency [Unknown]
  - Drug ineffective [Unknown]
  - Deafness unilateral [Unknown]
  - Dyspnoea [Unknown]
  - Drug withdrawal syndrome [Unknown]
  - Drug interaction [Unknown]
  - Malaise [Unknown]
  - Calcium deficiency [Unknown]
  - Biotin deficiency [Unknown]
  - Intestinal obstruction [Unknown]
  - Alopecia [Unknown]
  - Lung neoplasm malignant [Recovered/Resolved]
  - Heart rate irregular [Unknown]

NARRATIVE: CASE EVENT DATE: 20121225
